FAERS Safety Report 7898892-7 (Version None)
Quarter: 2011Q4

REPORT INFORMATION
  Report Type: 
  Country: None (occurrence: None)
  Receive Date: 20111107
  Receipt Date: 20111031
  Transmission Date: 20120403
  Serious: Yes (Other)
  Sender: FDA-Public Use
  Company Number: GB-UCBSA-042880

PATIENT
  Age: 69 Year
  Sex: Female

DRUGS (9)
  1. ZOLEDRONIC ACID [Concomitant]
     Indication: OSTEOPOROSIS
     Route: 048
  2. CIMZIA [Suspect]
     Indication: RHEUMATOID ARTHRITIS
     Route: 058
     Dates: start: 20101109, end: 20110329
  3. PREDNISOLONE [Concomitant]
     Indication: RHEUMATOID ARTHRITIS
     Route: 048
  4. AMLODIPINE [Concomitant]
     Indication: HYPERTENSION
     Route: 048
  5. ACETAMINOPHEN AND CODEINE PHOSPHATE [Concomitant]
     Indication: PAIN
     Dosage: 8/500 MG ; PRN
     Route: 048
  6. FOLIC ACID [Concomitant]
     Dosage: DOSE PER INTAKE:5 MG ; NO.OF INTAKES: 3/7
     Route: 048
  7. LANSOPRAZOLE [Concomitant]
     Indication: GASTRITIS PROPHYLAXIS
     Route: 048
  8. ADCAL D3 [Concomitant]
     Indication: BONE DISORDER
     Dosage: ALTERNATE DAYS
     Route: 048
  9. METHOTREXATE [Concomitant]
     Indication: RHEUMATOID ARTHRITIS
     Route: 058

REACTIONS (4)
  - LOWER RESPIRATORY TRACT INFECTION [None]
  - RASH [None]
  - DRUG INEFFECTIVE [None]
  - FEELING ABNORMAL [None]
